FAERS Safety Report 4409812-1 (Version None)
Quarter: 2004Q3

REPORT INFORMATION
  Report Type: 
  Country: None (occurrence: None)
  Receive Date: 20040726
  Receipt Date: 20040709
  Transmission Date: 20050211
  Serious: Yes (Life-Threatening, Hospitalization)
  Sender: FDA-Public Use
  Company Number: WAES 0407USA00513

PATIENT
  Age: 80 Year
  Sex: Male

DRUGS (4)
  1. COZAAR [Suspect]
     Indication: HYPERTENSION
     Dosage: 50 MG, DAILY, PO
     Route: 048
     Dates: start: 20000906, end: 20010213
  2. COZAAR [Suspect]
     Indication: HYPERTENSION
     Dosage: 100 MG, DAILY, PO
     Route: 048
     Dates: start: 20010214, end: 20040413
  3. NORVASC [Suspect]
     Indication: HYPERTENSION
     Dosage: 5 MG, DAILY, PO
     Route: 048
     Dates: start: 20010314, end: 20040413
  4. CATALIN [Concomitant]

REACTIONS (1)
  - GASTRIC CANCER [None]
